FAERS Safety Report 18964635 (Version 1)
Quarter: 2021Q1

REPORT INFORMATION
  Report Type: Spontaneous
  Country: FR (occurrence: FR)
  Receive Date: 20210303
  Receipt Date: 20210303
  Transmission Date: 20210420
  Serious: Yes (Hospitalization, Other)
  Sender: FDA-Public Use
  Company Number: FR-GLAXOSMITHKLINE-FRCH2021009109

PATIENT
  Age: 55 Year
  Sex: Male

DRUGS (6)
  1. ACTIFED (PSEUDOEPHEDRINE HYDROCHLORIDE\TRIPROLIDINE HYDROCHLORIDE) [Suspect]
     Active Substance: PSEUDOEPHEDRINE HYDROCHLORIDE\TRIPROLIDINE HYDROCHLORIDE
     Indication: INFLUENZA LIKE ILLNESS
     Dosage: 4 DF, QD
     Route: 048
     Dates: start: 20200310, end: 20200314
  2. PYRIMETHAMINE [Suspect]
     Active Substance: PYRIMETHAMINE
     Indication: PRODUCT USED FOR UNKNOWN INDICATION
     Dosage: UNK
     Route: 065
     Dates: start: 20200312, end: 20200314
  3. SULFAMETOPYRAZINE [Suspect]
     Active Substance: SULFALENE
     Indication: PRODUCT USED FOR UNKNOWN INDICATION
     Dosage: UNK
     Route: 065
     Dates: start: 20200312, end: 20200314
  4. ADVIL [Suspect]
     Active Substance: IBUPROFEN
     Indication: INFLUENZA LIKE ILLNESS
     Dosage: 4 DF, QD
     Route: 048
     Dates: start: 20200310, end: 20200314
  5. STREPSILS (AMYLMETACRESOL + ASCORBIC ACID + DICHLOROBENZYL ALCOHOL) [Suspect]
     Active Substance: AMYLMETACRESOL\ASCORBIC ACID\DICHLOROBENZYL ALCOHOL
     Indication: INFLUENZA LIKE ILLNESS
     Dosage: 3 DF, QD
     Route: 048
     Dates: start: 20200310, end: 20200314
  6. ARTESUNATE [Suspect]
     Active Substance: ARTESUNATE
     Indication: MALARIA
     Dosage: UNK
     Route: 065
     Dates: start: 20200312, end: 20200314

REACTIONS (1)
  - Drug reaction with eosinophilia and systemic symptoms [Recovered/Resolved]

NARRATIVE: CASE EVENT DATE: 20200313
